FAERS Safety Report 16134736 (Version 6)
Quarter: 2020Q3

REPORT INFORMATION
  Report Type: Report from Study
  Country: US (occurrence: US)
  Receive Date: 20190329
  Receipt Date: 20200914
  Transmission Date: 20201102
  Serious: Yes (Hospitalization)
  Sender: FDA-Public Use
  Company Number: PHHY2019US067648

PATIENT
  Age: 18 Year
  Sex: Male
  Weight: 67 kg

DRUGS (18)
  1. INC424A [Suspect]
     Active Substance: RUXOLITINIB
     Dosage: 105 MG, BID
     Route: 048
     Dates: start: 20190325
  2. VINCRISTINE [Suspect]
     Active Substance: VINCRISTINE
     Indication: B PRECURSOR TYPE ACUTE LEUKAEMIA
     Dosage: 2 MG, ONCE/SINGLE
     Route: 042
     Dates: start: 20190304, end: 20190304
  3. VINCRISTINE [Suspect]
     Active Substance: VINCRISTINE
     Dosage: 2 MG, ONCE/SINGLE
     Route: 042
     Dates: start: 20190408
  4. METHOTREXATE. [Suspect]
     Active Substance: METHOTREXATE
     Dosage: 15 MG, ONCE/SINGLE
     Route: 037
     Dates: start: 20190305, end: 20190305
  5. METHOTREXATE. [Suspect]
     Active Substance: METHOTREXATE
     Indication: B PRECURSOR TYPE ACUTE LEUKAEMIA
     Dosage: 15 MG, ONCE/SINGLE
     Route: 037
     Dates: start: 20190219, end: 20190219
  6. MERCAPTOPURINE. [Suspect]
     Active Substance: MERCAPTOPURINE
     Indication: B PRECURSOR TYPE ACUTE LEUKAEMIA
     Dosage: 75 MG X 14, QD
     Route: 048
     Dates: start: 20190218
  7. INC424A [Suspect]
     Active Substance: RUXOLITINIB
     Indication: B PRECURSOR TYPE ACUTE LEUKAEMIA
     Dosage: 105 MG, QD
     Route: 048
     Dates: start: 20190219, end: 20190314
  8. PEGASPARGASE [Suspect]
     Active Substance: PEGASPARGASE
     Indication: B PRECURSOR TYPE ACUTE LEUKAEMIA
     Dosage: 5375 IU, ONCE/SINGLE
     Route: 042
     Dates: start: 20190304, end: 20190304
  9. CYCLOPHOSPHAMIDE. [Suspect]
     Active Substance: CYCLOPHOSPHAMIDE
     Indication: B PRECURSOR TYPE ACUTE LEUKAEMIA
     Dosage: 2090 MG, ONCE/SINGLE
     Route: 042
     Dates: start: 20190218
  10. ACETAMINOPHEN. [Concomitant]
     Active Substance: ACETAMINOPHEN
     Indication: HEADACHE
     Dosage: 650 MG, ONCE/SINGLE
     Route: 048
     Dates: start: 20190316
  11. CYTARABINE. [Suspect]
     Active Substance: CYTARABINE
     Dosage: 157X4 MG IV PUSH, QD
     Route: 042
     Dates: start: 20190225
  12. MOTRIN [Concomitant]
     Active Substance: IBUPROFEN
     Indication: BACK PAIN
     Dosage: 600 MG, ONCE/SINGLE
     Route: 048
     Dates: start: 20190316
  13. METHOTREXATE. [Suspect]
     Active Substance: METHOTREXATE
     Dosage: 15 MG, ONCE/SINGLE
     Route: 037
     Dates: start: 20190226, end: 20190226
  14. VINCRISTINE [Suspect]
     Active Substance: VINCRISTINE
     Dosage: 2 MG, ONCE/SINGLE
     Route: 042
     Dates: start: 20190311, end: 20190311
  15. GAS?X [Concomitant]
     Active Substance: DIMETHICONE
     Indication: ABDOMINAL PAIN
     Dosage: 80 MG, AFTER EACH MEAL
     Route: 065
     Dates: start: 20190317, end: 20190317
  16. METHOTREXATE. [Suspect]
     Active Substance: METHOTREXATE
     Dosage: 15 MG, ONCE/SINGLE
     Route: 037
     Dates: start: 20190312
  17. PEGASPARGASE [Suspect]
     Active Substance: PEGASPARGASE
     Dosage: 5400 IU, OVER 2 HOURS
     Route: 042
     Dates: start: 20190408
  18. CYTARABINE. [Suspect]
     Active Substance: CYTARABINE
     Indication: B PRECURSOR TYPE ACUTE LEUKAEMIA
     Dosage: 157X4 MG IV PUSH, QD
     Route: 042
     Dates: start: 20190218, end: 20190221

REACTIONS (5)
  - Febrile neutropenia [Recovered/Resolved]
  - Anaemia [Recovered/Resolved]
  - Platelet count decreased [Recovered/Resolved]
  - Rash [Recovered/Resolved]
  - Febrile neutropenia [Recovered/Resolved]

NARRATIVE: CASE EVENT DATE: 20190314
